FAERS Safety Report 6646590-X (Version None)
Quarter: 2010Q1

REPORT INFORMATION
  Report Type: 
  Country: None (occurrence: None)
  Receive Date: 20100322
  Receipt Date: 20100322
  Transmission Date: 20100710
  Serious: Yes (Hospitalization)
  Sender: FDA-Public Use
  Company Number: None

PATIENT
  Age: 61 Year
  Sex: Male

DRUGS (2)
  1. RALTEGRAVIR [Suspect]
     Indication: HIV INFECTION
     Dosage: 400 MG BID PO
     Route: 048
  2. KALETRA [Suspect]

REACTIONS (6)
  - PAIN [None]
  - PANCREATITIS [None]
  - RASH ERYTHEMATOUS [None]
  - RASH GENERALISED [None]
  - RASH PAPULAR [None]
  - RASH PRURITIC [None]
